FAERS Safety Report 5632086-0 (Version None)
Quarter: 2008Q1

REPORT INFORMATION
  Report Type: 
  Country: None (occurrence: None)
  Receive Date: 20080220
  Receipt Date: 20080211
  Transmission Date: 20080703
  Serious: Yes (Other)
  Sender: FDA-Public Use
  Company Number: B0504682A

PATIENT
  Age: 54 Year
  Sex: Female

DRUGS (5)
  1. REQUIP [Suspect]
     Indication: PARKINSON'S DISEASE
     Dosage: 6MG THREE TIMES PER DAY
     Route: 065
     Dates: start: 20070801
  2. CABERGOLINE [Suspect]
     Indication: PARKINSON'S DISEASE
     Dosage: 5MG PER DAY
     Route: 048
     Dates: start: 20011001, end: 20070801
  3. ZELAPAR [Concomitant]
     Indication: PARKINSON'S DISEASE
     Dosage: 1.25MG PER DAY
     Route: 048
     Dates: start: 20040901
  4. SINEMET CR [Concomitant]
     Indication: PARKINSON'S DISEASE
     Dosage: 250MG PER DAY
     Route: 048
     Dates: start: 20021001
  5. SINEMET [Concomitant]
     Indication: PARKINSON'S DISEASE
     Dosage: 125MG TWICE PER DAY
     Route: 048
     Dates: start: 20010101

REACTIONS (1)
  - CONDITION AGGRAVATED [None]
